FAERS Safety Report 8046876-0 (Version None)
Quarter: 2012Q1

REPORT INFORMATION
  Report Type: 
  Country: None (occurrence: None)
  Receive Date: 20120116
  Receipt Date: 20120110
  Transmission Date: 20120608
  Serious: Yes (Hospitalization)
  Sender: FDA-Public Use
  Company Number: ES-AMGEN-ESPCT2012001583

PATIENT
  Age: 66 Year
  Sex: Male

DRUGS (5)
  1. FLUOROURACIL [Concomitant]
     Dosage: 400 MG/M2, Q2WK
     Route: 040
     Dates: start: 20101227
  2. FLUOROURACIL [Concomitant]
     Dosage: 600 MG/M2, Q2WK
     Route: 041
     Dates: start: 20101227
  3. PANITUMUMAB [Suspect]
     Indication: COLORECTAL CANCER METASTATIC
     Dosage: 4.8 MG/KG, Q2WK
     Route: 042
     Dates: start: 20101227
  4. OXALIPLATIN [Concomitant]
     Dosage: UNK UNK, Q2WK
     Route: 042
     Dates: start: 20101227
  5. LEUCOVORIN CALCIUM [Concomitant]
     Indication: COLORECTAL CANCER METASTATIC
     Dosage: 200 MG/M2, Q2WK
     Route: 042
     Dates: start: 20101227

REACTIONS (1)
  - CHOLESTASIS [None]
